FAERS Safety Report 5764944-0 (Version None)
Quarter: 2008Q2

REPORT INFORMATION
  Report Type: 
  Country: None (occurrence: None)
  Receive Date: 20080611
  Receipt Date: 20080606
  Transmission Date: 20081010
  Serious: Yes (Other)
  Sender: FDA-Public Use
  Company Number: B0512881A

PATIENT
  Sex: Female

DRUGS (10)
  1. SERETIDE [Suspect]
     Indication: ASTHMA
     Dosage: 2SPR PER DAY
     Route: 055
  2. ACETAMINOPHEN W/ CODEINE [Concomitant]
     Route: 065
  3. CELEBREX [Concomitant]
     Dosage: 200MG PER DAY
     Route: 065
  4. ESOMEPRAZOLE [Concomitant]
     Dosage: 40MG PER DAY
     Route: 065
  5. GAVISCON [Concomitant]
     Route: 065
  6. HYOSCINE [Concomitant]
     Route: 065
  7. LISINOPRIL [Concomitant]
     Route: 065
  8. BRICANYL TURBOHALER [Concomitant]
     Route: 065
  9. TRAMADOL HCL [Concomitant]
     Route: 065
  10. DOMPERIDONE [Concomitant]
     Route: 065

REACTIONS (9)
  - ASTHMA [None]
  - COUGH [None]
  - GAIT DISTURBANCE [None]
  - INCREASED UPPER AIRWAY SECRETION [None]
  - MALAISE [None]
  - NON-CARDIAC CHEST PAIN [None]
  - OVERDOSE [None]
  - PHARMACEUTICAL PRODUCT COMPLAINT [None]
  - THERAPEUTIC RESPONSE DECREASED [None]
